FAERS Safety Report 5523498-4 (Version None)
Quarter: 2007Q4

REPORT INFORMATION
  Report Type: 
  Country: None (occurrence: None)
  Receive Date: 20071121
  Receipt Date: 20071109
  Transmission Date: 20080405
  Serious: Yes (Life-Threatening, Hospitalization, Disabling)
  Sender: FDA-Public Use
  Company Number: JP-ROCHE-508459

PATIENT
  Age: 47 Year
  Sex: Male

DRUGS (2)
  1. PANALDINE [Suspect]
     Indication: CEREBRAL INFARCTION
     Route: 048
     Dates: start: 19940101, end: 20061112
  2. AMANTADINE HCL [Concomitant]
     Route: 048

REACTIONS (4)
  - CEREBRAL AUTOSOMAL DOMINANT ARTERIOPATHY WITH SUBCORTICAL INFARCTS AND LEUKOENCEPHALOPATHY [None]
  - CEREBRAL INFARCTION [None]
  - DEMENTIA [None]
  - PUTAMEN HAEMORRHAGE [None]
